FAERS Safety Report 24123240 (Version 1)
Quarter: 2024Q3

REPORT INFORMATION
  Report Type: Spontaneous
  Country: US (occurrence: US)
  Receive Date: 20240723
  Receipt Date: 20240723
  Transmission Date: 20241017
  Serious: No
  Sender: OTSUKA
  Company Number: US-OTSUKA-2023_022764

PATIENT
  Sex: Female
  Weight: 52.16 kg

DRUGS (1)
  1. REXULTI [Suspect]
     Active Substance: BREXPIPRAZOLE
     Indication: Product used for unknown indication
     Dosage: UNK
     Route: 065

REACTIONS (8)
  - Feeding disorder [Unknown]
  - Dysarthria [Unknown]
  - Tongue biting [Unknown]
  - Ageusia [Unknown]
  - Toxicity to various agents [Unknown]
  - Neurosis [Unknown]
  - Depressed mood [Unknown]
  - Crying [Unknown]
